FAERS Safety Report 5021923-9 (Version None)
Quarter: 2006Q2

REPORT INFORMATION
  Report Type: 
  Country: None (occurrence: None)
  Receive Date: 20060601
  Receipt Date: 20060130
  Transmission Date: 20061013
  Serious: No
  Sender: FDA-Public Use
  Company Number: 2006PV007863

PATIENT
  Age: 48 Year
  Sex: Male
  Weight: 91.173 kg

DRUGS (5)
  1. BYETTA [Suspect]
     Indication: DIABETES MELLITUS NON-INSULIN-DEPENDENT
     Dosage: 10 MCG;BID;SC
     Route: 058
     Dates: start: 20060128
  2. GLIPIZIDE [Concomitant]
  3. AVANDIA [Concomitant]
  4. VYTORIN [Concomitant]
  5. SYNTHROID [Concomitant]

REACTIONS (5)
  - FEELING COLD [None]
  - INCORRECT DOSE ADMINISTERED [None]
  - MEDICATION ERROR [None]
  - NAUSEA [None]
  - VOMITING [None]
